FAERS Safety Report 23611839 (Version 2)
Quarter: 2024Q1

REPORT INFORMATION
  Report Type: Spontaneous
  Country: CN (occurrence: CN)
  Receive Date: 20240308
  Receipt Date: 20240327
  Transmission Date: 20240409
  Serious: Yes (Hospitalization, Other)
  Sender: FDA-Public Use
  Company Number: CN-SA-SAC20240307000732

PATIENT
  Age: 86 Year
  Sex: Female

DRUGS (2)
  1. PLAVIX [Suspect]
     Active Substance: CLOPIDOGREL BISULFATE
     Indication: Coronary artery disease
     Dosage: 75MG, QD
     Route: 048
     Dates: start: 20231216, end: 20240103
  2. CEFOPERAZONE SODIUM\SULBACTAM SODIUM [Suspect]
     Active Substance: CEFOPERAZONE SODIUM\SULBACTAM SODIUM
     Indication: Tachypnoea
     Dosage: 3G, BID
     Route: 041
     Dates: start: 20231216, end: 20231228

REACTIONS (6)
  - Coagulopathy [Recovering/Resolving]
  - Haematochezia [Recovering/Resolving]
  - Chest discomfort [Unknown]
  - Tachypnoea [Unknown]
  - Dizziness [Unknown]
  - Anaemia [Unknown]

NARRATIVE: CASE EVENT DATE: 20240103
